FAERS Safety Report 20589536 (Version 1)
Quarter: 2022Q1

REPORT INFORMATION
  Report Type: Spontaneous
  Country: GB (occurrence: GB)
  Receive Date: 20220314
  Receipt Date: 20220314
  Transmission Date: 20220423
  Serious: Yes (Other)
  Sender: FDA-Public Use
  Company Number: GB-JUBILANT PHARMA LTD-2018GB000110

PATIENT
  Age: 32 Year
  Sex: Female

DRUGS (17)
  1. AMISULPRIDE [Suspect]
     Active Substance: AMISULPRIDE
     Indication: Product used for unknown indication
     Dosage: UNK
  2. ARIPIPRAZOLE [Suspect]
     Active Substance: ARIPIPRAZOLE
     Indication: Product used for unknown indication
     Dosage: UNK (EVERY)
     Dates: start: 2019
  3. CLOZARIL [Suspect]
     Active Substance: CLOZAPINE
     Indication: Schizophrenia
     Dosage: UNK
     Route: 048
     Dates: start: 20180205, end: 2019
  4. CLOZARIL [Suspect]
     Active Substance: CLOZAPINE
     Dosage: UNK
     Route: 048
     Dates: start: 201909
  5. CLOZARIL [Suspect]
     Active Substance: CLOZAPINE
     Dosage: UNK
     Route: 048
     Dates: start: 20050215
  6. CLOZARIL [Suspect]
     Active Substance: CLOZAPINE
     Dosage: UNK (EVERY)
     Route: 048
     Dates: start: 2019
  7. CLOZARIL [Suspect]
     Active Substance: CLOZAPINE
     Dosage: UNK
     Dates: start: 2006, end: 20171205
  8. CLOZARIL [Suspect]
     Active Substance: CLOZAPINE
     Dosage: UNK
     Route: 048
     Dates: start: 2006, end: 20171205
  9. CLOZARIL [Suspect]
     Active Substance: CLOZAPINE
     Dosage: UNK (EVERY)
     Route: 048
     Dates: start: 20180205, end: 2019
  10. QUETIAPINE [Suspect]
     Active Substance: QUETIAPINE
     Indication: Product used for unknown indication
     Dosage: UNK (EVERY)
  11. RISPERIDONE [Suspect]
     Active Substance: RISPERIDONE
     Indication: Product used for unknown indication
     Dosage: UNK
  12. OLANZAPINE [Suspect]
     Active Substance: OLANZAPINE
     Indication: Product used for unknown indication
     Dosage: UNK
  13. RISPERDAL [Suspect]
     Active Substance: RISPERIDONE
     Indication: Hallucination, auditory
     Dosage: UNK (EVERY)
  14. HALOPERIDOL DECANOATE [Suspect]
     Active Substance: HALOPERIDOL DECANOATE
     Indication: Hallucination, auditory
     Dosage: UNK
  15. ZUCLOPENTHIXOL [Suspect]
     Active Substance: ZUCLOPENTHIXOL
     Indication: Hallucination, auditory
     Dosage: UNK
     Dates: start: 2006, end: 20171205
  16. ZUCLOPENTHIXOL [Suspect]
     Active Substance: ZUCLOPENTHIXOL
     Dosage: UNK
  17. QUETIAPINE [Suspect]
     Active Substance: QUETIAPINE
     Indication: Product used for unknown indication
     Dosage: UNK

REACTIONS (9)
  - Suicidal ideation [Unknown]
  - Drug ineffective [Unknown]
  - Schizophrenia [Not Recovered/Not Resolved]
  - Malaise [Unknown]
  - Neutropenia [Recovered/Resolved]
  - Leukopenia [Recovered/Resolved]
  - Eosinophil count decreased [Recovered/Resolved]
  - Product use in unapproved indication [Unknown]
  - Refusal of examination [Unknown]

NARRATIVE: CASE EVENT DATE: 20171101
